FAERS Safety Report 16393706 (Version 1)
Quarter: 2019Q2

REPORT INFORMATION
  Report Type: Spontaneous
  Country: US (occurrence: US)
  Receive Date: 20190605
  Receipt Date: 20190605
  Transmission Date: 20190711
  Serious: No
  Sender: FDA-Public Use
  Company Number: US-PFIZER INC-2019234574

PATIENT
  Age: 83 Year
  Sex: Female
  Weight: 48.8 kg

DRUGS (2)
  1. MORPHINE SULFATE. [Suspect]
     Active Substance: MORPHINE SULFATE
     Dosage: UNK
  2. P-PHENYLENEDIAMINE [Suspect]
     Active Substance: P-PHENYLENEDIAMINE
     Dosage: UNK

REACTIONS (1)
  - Drug hypersensitivity [Unknown]
